FAERS Safety Report 4526279-3 (Version None)
Quarter: 2004Q4

REPORT INFORMATION
  Report Type: 
  Country: None (occurrence: None)
  Receive Date: 20041210
  Receipt Date: 20040315
  Transmission Date: 20050328
  Serious: Yes (Hospitalization)
  Sender: FDA-Public Use
  Company Number: 2004204274CH

PATIENT
  Age: 93 Year
  Sex: Female
  Weight: 62 kg

DRUGS (11)
  1. DEPONIT [Suspect]
     Dosage: 1 PATCH,QD,TRANSDERMAL
     Route: 062
     Dates: end: 20040128
  2. MORPHINE SULFATE [Concomitant]
  3. RENTEN [Concomitant]
  4. SORBIDILAT - SLOW RELEASE [Concomitant]
  5. SINTROM [Concomitant]
  6. DIGOXIN [Concomitant]
  7. TEMESTA [Concomitant]
  8. SERESTA [Concomitant]
  9. ALDACTONE [Concomitant]
  10. PREDNISOLONE [Concomitant]
  11. TOREM [Concomitant]

REACTIONS (2)
  - EXANTHEM [None]
  - HYPERSENSITIVITY [None]
